FAERS Safety Report 16470693 (Version 2)
Quarter: 2019Q4

REPORT INFORMATION
  Report Type: Spontaneous
  Country: US (occurrence: US)
  Receive Date: 20190624
  Receipt Date: 20191226
  Transmission Date: 20200122
  Serious: No
  Sender: FDA-Public Use
  Company Number: US-CATALYST PHARMACEUTICALS, INC-2019CAT00099

PATIENT
  Sex: Female
  Weight: 86.17 kg

DRUGS (6)
  1. FIRDAPSE [Suspect]
     Active Substance: AMIFAMPRIDINE
     Dosage: 20 MG, 3X/DAY
     Route: 048
     Dates: start: 20190322, end: 201908
  2. MAGNESIUM [Concomitant]
     Active Substance: MAGNESIUM
  3. TOPAMAX [Concomitant]
     Active Substance: TOPIRAMATE
  4. FIRDAPSE [Suspect]
     Active Substance: AMIFAMPRIDINE
     Indication: MYASTHENIC SYNDROME
     Dosage: 40 MG, 2X/DAY
     Route: 048
     Dates: start: 201903, end: 2019
  5. METHIMAZOLE. [Concomitant]
     Active Substance: METHIMAZOLE
  6. UNSPECIFIED THYROID MEDICATION [Concomitant]
     Active Substance: UNSPECIFIED INGREDIENT

REACTIONS (4)
  - Weight increased [Unknown]
  - Drug ineffective [Recovered/Resolved]
  - Abdominal pain upper [Recovering/Resolving]
  - Off label use [Recovered/Resolved]

NARRATIVE: CASE EVENT DATE: 2019
